FAERS Safety Report 4797966-7 (Version None)
Quarter: 2005Q3

REPORT INFORMATION
  Report Type: 
  Country: None (occurrence: None)
  Receive Date: 20050929
  Receipt Date: 20050829
  Transmission Date: 20060218
  Serious: No
  Sender: FDA-Public Use
  Company Number: 05P-163-0309565-00

PATIENT
  Age: 67 Year
  Sex: Female
  Weight: 48.5349 kg

DRUGS (3)
  1. HUMIRA [Suspect]
     Indication: PSORIATIC ARTHROPATHY
     Dosage: 40 MG, 1 IN 1 WK, SUBCUTANEOUS
     Route: 058
     Dates: start: 20050301
  2. RALOXIFENE HYDROCHLORIDE [Concomitant]
  3. TOPOROL [Concomitant]

REACTIONS (2)
  - PSORIASIS [None]
  - RASH [None]
